FAERS Safety Report 16794338 (Version 2)
Quarter: 2019Q3

REPORT INFORMATION
  Report Type: Spontaneous
  Country: US (occurrence: US)
  Receive Date: 20190911
  Receipt Date: 20190925
  Transmission Date: 20191005
  Serious: Yes (Other)
  Sender: FDA-Public Use
  Company Number: US-ASTRAZENECA-2018SF65525

PATIENT
  Age: 26626 Day
  Sex: Male

DRUGS (21)
  1. SKELAXIN [Concomitant]
     Active Substance: METAXALONE
  2. LINZESS [Concomitant]
     Active Substance: LINACLOTIDE
  3. PREVACID [Suspect]
     Active Substance: LANSOPRAZOLE
     Route: 065
  4. PRIMIDONE. [Concomitant]
     Active Substance: PRIMIDONE
  5. METOPROLOL SUCCINATE. [Concomitant]
     Active Substance: METOPROLOL SUCCINATE
  6. GABAPENTIN. [Concomitant]
     Active Substance: GABAPENTIN
  7. ATORVASTATIN [Concomitant]
     Active Substance: ATORVASTATIN
  8. AMOXICILLIN. [Concomitant]
     Active Substance: AMOXICILLIN
  9. LEVOTHYROXINE. [Concomitant]
     Active Substance: LEVOTHYROXINE
  10. FINASTERIDE. [Concomitant]
     Active Substance: FINASTERIDE
  11. NEXIUM [Suspect]
     Active Substance: ESOMEPRAZOLE MAGNESIUM
     Route: 048
     Dates: start: 20130618
  12. PANTOPRAZOLE SODIUM. [Concomitant]
     Active Substance: PANTOPRAZOLE SODIUM
  13. FINASTERIDE. [Concomitant]
     Active Substance: FINASTERIDE
  14. MELOXICAM. [Concomitant]
     Active Substance: MELOXICAM
  15. SYNTHROID [Concomitant]
     Active Substance: LEVOTHYROXINE SODIUM
  16. CYTOTEC [Concomitant]
     Active Substance: MISOPROSTOL
  17. ZIPRASIDONE. [Concomitant]
     Active Substance: ZIPRASIDONE
  18. ESCITALOPRAM [Concomitant]
     Active Substance: ESCITALOPRAM OXALATE
  19. LAMOTRIGINE. [Concomitant]
     Active Substance: LAMOTRIGINE
  20. GEODON [Concomitant]
     Active Substance: ZIPRASIDONE HYDROCHLORIDE\ZIPRASIDONE MESYLATE
  21. NAPROXEN. [Concomitant]
     Active Substance: NAPROXEN

REACTIONS (5)
  - Renal failure [Unknown]
  - Renal injury [Unknown]
  - Renal impairment [Unknown]
  - Rebound acid hypersecretion [Unknown]
  - Chronic kidney disease [Unknown]

NARRATIVE: CASE EVENT DATE: 20170419
